FAERS Safety Report 5746846-9 (Version None)
Quarter: 2008Q2

REPORT INFORMATION
  Report Type: 
  Country: None (occurrence: None)
  Receive Date: 20080522
  Receipt Date: 20080516
  Transmission Date: 20081010
  Serious: Yes (Other)
  Sender: FDA-Public Use
  Company Number: US-PFIZER INC-2008042805

PATIENT
  Sex: Female
  Weight: 41.8 kg

DRUGS (2)
  1. XALATAN [Suspect]
     Indication: GLAUCOMA
     Route: 047
  2. DRUG, UNSPECIFIED [Concomitant]

REACTIONS (5)
  - CATARACT OPERATION [None]
  - DRY EYE [None]
  - EYE IRRITATION [None]
  - EYE PAIN [None]
  - INSOMNIA [None]
